FAERS Safety Report 5043019-2 (Version None)
Quarter: 2006Q2

REPORT INFORMATION
  Report Type: 
  Country: None (occurrence: None)
  Receive Date: 20060628
  Receipt Date: 20060620
  Transmission Date: 20061013
  Serious: Yes (Life-Threatening)
  Sender: FDA-Public Use
  Company Number: TCI2006A02583

PATIENT
  Age: 59 Year
  Sex: Male

DRUGS (12)
  1. ACTOS [Suspect]
     Indication: DIABETES MELLITUS
     Dosage: SEE IMAGE
     Route: 048
     Dates: start: 20060529, end: 20060601
  2. ACTOS [Suspect]
     Indication: DIABETES MELLITUS
     Dosage: SEE IMAGE
     Route: 048
     Dates: start: 20060602, end: 20060605
  3. LOSARTAN POTASSIUM [Concomitant]
  4. AMLODIPINE BESYLATE [Concomitant]
  5. ENALAPRIL MALEATE [Concomitant]
  6. FAMOTIDINE [Concomitant]
  7. GLUCOBAY [Concomitant]
  8. LOXONIN (LOXOPROFEN SODIUM) [Concomitant]
  9. MILLISTAPE (GLYCERYL TRINITRATE) [Concomitant]
  10. NIFEDIPINE [Concomitant]
  11. GLYCEOL (GLYCEROL, FRUCTOSE) [Concomitant]
  12. GLIMICRON (GLICLAZIDE) [Concomitant]

REACTIONS (6)
  - BLOOD GLUCOSE INCREASED [None]
  - CONDITION AGGRAVATED [None]
  - DISSEMINATED INTRAVASCULAR COAGULATION [None]
  - HAEMATURIA [None]
  - HAEMORRHAGIC CEREBRAL INFARCTION [None]
  - SUBARACHNOID HAEMORRHAGE [None]
